FAERS Safety Report 8613543-1 (Version None)
Quarter: 2012Q3

REPORT INFORMATION
  Report Type: 
  Country: None (occurrence: None)
  Receive Date: 20120823
  Receipt Date: 20120808
  Transmission Date: 20120928
  Serious: Yes (Other)
  Sender: FDA-Public Use
  Company Number: GB-009507513-1208GBR004254

PATIENT

DRUGS (2)
  1. PROPECIA [Suspect]
     Indication: ANDROGENETIC ALOPECIA
     Dosage: 1 DF, QD
     Route: 048
  2. PROPECIA [Suspect]
     Indication: ALOPECIA

REACTIONS (10)
  - FEMINISATION ACQUIRED [None]
  - LOSS OF CONSCIOUSNESS [None]
  - HORMONE LEVEL ABNORMAL [None]
  - PANIC ATTACK [None]
  - SUICIDAL IDEATION [None]
  - DEPRESSION [None]
  - ANXIETY [None]
  - IMPAIRED WORK ABILITY [None]
  - SOCIAL PROBLEM [None]
  - DRUG INEFFECTIVE [None]
